FAERS Safety Report 8904451 (Version 2)
Quarter: 2012Q4

REPORT INFORMATION
  Report Type: 
  Country: JP (occurrence: JP)
  Receive Date: 20121110
  Receipt Date: 20121115
  Transmission Date: 20130627
  Serious: Yes (Hospitalization)
  Sender: FDA-Public Use
  Company Number: JP-009507513-1211JPN001362

PATIENT
  Age: 73 Year
  Sex: Female
  Weight: 48 kg

DRUGS (6)
  1. PEGINTRON [Suspect]
     Indication: CHRONIC HEPATITIS C
     Dosage: 80 Microgram, qw
     Route: 058
     Dates: start: 20121017
  2. REBETOL [Suspect]
     Indication: CHRONIC HEPATITIS C
     Dosage: 600 mg, qd
     Route: 048
     Dates: start: 20121017, end: 20121030
  3. REBETOL [Suspect]
     Dosage: 400 UNK, UNK
     Route: 048
     Dates: start: 20121031
  4. TELAVIC [Suspect]
     Indication: CHRONIC HEPATITIS C
     Dosage: 1500 mg, qd
     Route: 048
     Dates: start: 20121017, end: 20121020
  5. ALLEGRA [Concomitant]
     Dosage: 120 mg, UNK
     Route: 048
     Dates: start: 20121019, end: 20121030
  6. ZYLORIC [Concomitant]
     Dosage: 100 UNK, UNK
     Route: 048
     Dates: start: 20121020, end: 20121030

REACTIONS (1)
  - Rash [Recovered/Resolved]
